FAERS Safety Report 8908666 (Version 2)
Quarter: 2013Q1

REPORT INFORMATION
  Report Type: Spontaneous
  Country: US (occurrence: US)
  Receive Date: 20121114
  Receipt Date: 20130116
  Transmission Date: 20140127
  Serious: Yes (Other)
  Sender: FDA-Public Use
  Company Number: US-PURDUE-USA-2012-0095554

PATIENT
  Sex: Female

DRUGS (1)
  1. BUTRANS [Suspect]
     Indication: BACK PAIN
     Dosage: 10 MCG/HR, UNK
     Route: 062
     Dates: start: 201207

REACTIONS (14)
  - Overdose [Unknown]
  - Cerebrovascular accident [Unknown]
  - Paralysis [Recovered/Resolved]
  - Thrombosis [Unknown]
  - Chest pain [Unknown]
  - Blood pressure decreased [Recovered/Resolved]
  - Choking sensation [Unknown]
  - Drug ineffective [Recovered/Resolved]
  - Dyspnoea [Unknown]
  - Hypoaesthesia [Unknown]
  - Restlessness [Recovered/Resolved]
  - Nausea [Unknown]
  - Unevaluable event [Unknown]
  - Unevaluable event [Unknown]
